FAERS Safety Report 5900716-1 (Version None)
Quarter: 2008Q3

REPORT INFORMATION
  Report Type: 
  Country: None (occurrence: None)
  Receive Date: 20080928
  Receipt Date: 20080915
  Transmission Date: 20090109
  Serious: Yes (Hospitalization, Other)
  Sender: FDA-Public Use
  Company Number: ES-JNJFOC-20070903104

PATIENT
  Age: 46 Year
  Sex: Female
  Weight: 56 kg

DRUGS (7)
  1. INFLIXIMAB [Suspect]
     Indication: SJOGREN'S SYNDROME
     Route: 042
  2. INFLIXIMAB [Suspect]
     Indication: RHEUMATOID ARTHRITIS
     Route: 042
  3. METHOTREXATE [Concomitant]
     Indication: RHEUMATOID ARTHRITIS
     Route: 048
  4. INACID [Concomitant]
     Indication: RHEUMATOID ARTHRITIS
     Route: 048
  5. ACFOL [Concomitant]
     Route: 048
  6. OMEPRAZOLE [Concomitant]
     Route: 048
  7. ZAMENE [Concomitant]
     Route: 048

REACTIONS (1)
  - NON-HODGKIN'S LYMPHOMA [None]
